FAERS Safety Report 4430508-4 (Version None)
Quarter: 2004Q3

REPORT INFORMATION
  Report Type: 
  Country: None (occurrence: None)
  Receive Date: 20040721
  Receipt Date: 20030715
  Transmission Date: 20050211
  Serious: Yes (Other)
  Sender: FDA-Public Use
  Company Number: OMPQ-PR-0307S-0496(0)

PATIENT
  Age: 42 Year
  Sex: Female

DRUGS (1)
  1. OMNIPAQUE 140 [Suspect]
     Dosage: 100 ML, SINGLE DOSE, I.V.
     Route: 042
     Dates: start: 20030703, end: 20030703

REACTIONS (1)
  - HYPERSENSITIVITY [None]
